FAERS Safety Report 9018172 (Version 1)
Quarter: 2013Q1

REPORT INFORMATION
  Report Type: Spontaneous
  Country: FR (occurrence: FR)
  Receive Date: 20130117
  Receipt Date: 20130117
  Transmission Date: 20140127
  Serious: Yes (Hospitalization, Other)
  Sender: FDA-Public Use
  Company Number: FR-ABBOTT-13P-056-1034641-00

PATIENT
  Sex: Female

DRUGS (4)
  1. HUMIRA [Suspect]
     Indication: CROHN^S DISEASE
     Dates: start: 2009, end: 2009
  2. HUMIRA [Suspect]
     Route: 058
     Dates: start: 201109, end: 20111010
  3. HUMIRA [Suspect]
     Route: 058
     Dates: start: 201111, end: 201203
  4. REMICADE [Suspect]
     Indication: CROHN^S DISEASE
     Dates: start: 201011, end: 201101

REACTIONS (2)
  - Major depression [Recovering/Resolving]
  - Major depression [Unknown]
